FAERS Safety Report 17203352 (Version 1)
Quarter: 2019Q4

REPORT INFORMATION
  Report Type: Spontaneous
  Country: CN (occurrence: CN)
  Receive Date: 20191226
  Receipt Date: 20191226
  Transmission Date: 20200122
  Serious: Yes (Hospitalization, Other)
  Sender: FDA-Public Use
  Company Number: CN-ASTRAZENECA-2019SF85738

PATIENT
  Age: 22865 Day
  Sex: Female
  Weight: 56 kg

DRUGS (1)
  1. IRESSA [Suspect]
     Active Substance: GEFITINIB
     Indication: NEOPLASM MALIGNANT
     Route: 048
     Dates: start: 20190925, end: 20191218

REACTIONS (11)
  - Pleural effusion [Unknown]
  - Pneumonitis [Unknown]
  - Cough [Unknown]
  - Dyspnoea [Unknown]
  - Hypertension [Unknown]
  - Liver function test abnormal [Not Recovered/Not Resolved]
  - Pyrexia [Unknown]
  - Lymphadenopathy [Unknown]
  - Interstitial lung disease [Not Recovered/Not Resolved]
  - Metastases to lymph nodes [Unknown]
  - Nasopharyngitis [Unknown]

NARRATIVE: CASE EVENT DATE: 20191204
